FAERS Safety Report 21850753 (Version 1)
Quarter: 2023Q1

REPORT INFORMATION
  Report Type: Spontaneous
  Country: US (occurrence: US)
  Receive Date: 20230111
  Receipt Date: 20230111
  Transmission Date: 20230418
  Serious: No
  Sender: FDA-Public Use
  Company Number: US-ALLERGAN-2237085US

PATIENT
  Sex: Female

DRUGS (2)
  1. URSO 250 [Suspect]
     Active Substance: URSODIOL
     Indication: Product used for unknown indication
  2. OCALIVA [Suspect]
     Active Substance: OBETICHOLIC ACID
     Indication: Primary biliary cholangitis
     Dosage: 5 MG, QD
     Route: 048
     Dates: start: 20221025

REACTIONS (1)
  - Fatigue [Unknown]
